FAERS Safety Report 6169289-5 (Version None)
Quarter: 2009Q2

REPORT INFORMATION
  Report Type: 
  Country: None (occurrence: None)
  Receive Date: 20090424
  Receipt Date: 20090417
  Transmission Date: 20091009
  Serious: Yes (Hospitalization)
  Sender: FDA-Public Use
  Company Number: 2009SP008333

PATIENT
  Age: 52 Year
  Sex: Female

DRUGS (2)
  1. PEG-INTRON [Suspect]
     Indication: HEPATITIS C
     Dosage: SC
     Route: 058
     Dates: start: 20090102
  2. RIBAVIRIN [Suspect]
     Indication: HEPATITIS C
     Dosage: PO
     Route: 048
     Dates: start: 20090102

REACTIONS (6)
  - BLOOD PRESSURE INCREASED [None]
  - ENTERITIS INFECTIOUS [None]
  - IMMEDIATE POST-INJECTION REACTION [None]
  - IMMUNE SYSTEM DISORDER [None]
  - INTESTINAL OBSTRUCTION [None]
  - SINUSITIS [None]
